FAERS Safety Report 12431690 (Version 1)
Quarter: 2016Q2

REPORT INFORMATION
  Report Type: Spontaneous
  Country: IT (occurrence: IT)
  Receive Date: 20160603
  Receipt Date: 20160603
  Transmission Date: 20160815
  Serious: Yes (Death)
  Sender: FDA-Public Use
  Company Number: IT-TEVA-664722ACC

PATIENT
  Age: 43 Year
  Sex: Female

DRUGS (4)
  1. LOMUSTINE. [Suspect]
     Active Substance: LOMUSTINE
     Indication: EPENDYMOMA
  2. TEMOZOLOMIDE. [Suspect]
     Active Substance: TEMOZOLOMIDE
     Indication: EPENDYMOMA
     Dosage: 150-200MG/M2, QD ON DAYS 1-5
  3. PROCARBAZINE [Suspect]
     Active Substance: PROCARBAZINE
     Indication: EPENDYMOMA
  4. VINCRISTINE [Suspect]
     Active Substance: VINCRISTINE
     Indication: EPENDYMOMA

REACTIONS (2)
  - Ependymoma [Fatal]
  - Disease progression [Fatal]
